FAERS Safety Report 6941725-3 (Version None)
Quarter: 2010Q3

REPORT INFORMATION
  Report Type: 
  Country: None (occurrence: None)
  Receive Date: 20100826
  Receipt Date: 20100818
  Transmission Date: 20110219
  Serious: Yes (Hospitalization)
  Sender: FDA-Public Use
  Company Number: US-BIOGENIDEC-2010BI028832

PATIENT
  Age: 47 Year
  Sex: Female
  Weight: 66 kg

DRUGS (7)
  1. TYSABRI [Suspect]
     Indication: MULTIPLE SCLEROSIS
     Route: 042
     Dates: start: 20061120
  2. PREVACID [Concomitant]
     Indication: GASTROOESOPHAGEAL REFLUX DISEASE
     Dates: start: 19970101
  3. PREVACID [Concomitant]
     Indication: ULCER
     Dates: start: 19970101
  4. MORPHINE [Concomitant]
     Indication: MUSCLE SPASTICITY
     Dates: start: 20030101
  5. SYNTHROID [Concomitant]
     Indication: HYPOTHYROIDISM
     Dates: start: 19990101
  6. LYRICA [Concomitant]
     Indication: NEUROPATHY PERIPHERAL
     Dates: start: 20050101
  7. BACLOFEN [Concomitant]
     Indication: MUSCLE SPASTICITY
     Dates: start: 20030101

REACTIONS (10)
  - BLOOD URINE PRESENT [None]
  - CELLULITIS [None]
  - DEPRESSION [None]
  - FACIAL BONES FRACTURE [None]
  - FALL [None]
  - HIP FRACTURE [None]
  - NAUSEA [None]
  - OEDEMA [None]
  - OESOPHAGEAL SPASM [None]
  - OSTEOPOROSIS [None]
